FAERS Safety Report 7518251-6 (Version None)
Quarter: 2011Q2

REPORT INFORMATION
  Report Type: 
  Country: None (occurrence: None)
  Receive Date: 20110523
  Receipt Date: 20110509
  Transmission Date: 20111010
  Serious: Yes (Hospitalization)
  Sender: FDA-Public Use
  Company Number: 1000020580

PATIENT
  Age: 69 Year
  Sex: Male
  Weight: 57 kg

DRUGS (2)
  1. ESCITALOPRAM [Suspect]
     Indication: DEPRESSION
     Dosage: 15 MG (15 MG, 1 IN 1 D), ORAL
     Route: 048
     Dates: start: 20050101, end: 20060101
  2. PRAVASTATIN [Concomitant]

REACTIONS (1)
  - GYNAECOMASTIA [None]
